FAERS Safety Report 15402977 (Version 1)
Quarter: 2018Q3

REPORT INFORMATION
  Report Type: Spontaneous
  Country: US (occurrence: US)
  Receive Date: 20180917
  Receipt Date: 20180917
  Transmission Date: 20181010
  Serious: Yes (Other)
  Sender: FDA-Public Use
  Company Number: None

PATIENT
  Age: 72 Year
  Sex: Female
  Weight: 54 kg

DRUGS (1)
  1. YESCARTA [Suspect]
     Active Substance: AXICABTAGENE CILOLEUCEL
     Indication: B-CELL LYMPHOMA
     Route: 042
     Dates: start: 20180606, end: 20180606

REACTIONS (6)
  - Nervous system disorder [None]
  - Presyncope [None]
  - Seizure [None]
  - Cytokine release syndrome [None]
  - Syncope [None]
  - Febrile neutropenia [None]

NARRATIVE: CASE EVENT DATE: 20180606
